FAERS Safety Report 12311526 (Version 6)
Quarter: 2017Q1

REPORT INFORMATION
  Report Type: Spontaneous
  Country: JP (occurrence: JP)
  Receive Date: 20160427
  Receipt Date: 20170313
  Transmission Date: 20170428
  Serious: Yes (Disabling, Other)
  Sender: FDA-Public Use
  Company Number: JP-ELI_LILLY_AND_COMPANY-JP201604008503

PATIENT
  Age: 57 Year
  Sex: Female
  Weight: 46 kg

DRUGS (5)
  1. ERBITUX [Suspect]
     Active Substance: CETUXIMAB
     Indication: COLON CANCER
     Dosage: 750 MG, EVERY 2 WEEKS
     Route: 042
     Dates: start: 201510, end: 20151207
  2. CALCIUM FOLINATE [Concomitant]
     Active Substance: LEUCOVORIN CALCIUM
     Indication: COLON CANCER
     Dosage: UNK
  3. ERBITUX [Suspect]
     Active Substance: CETUXIMAB
     Dosage: 650 MG, EVERY 2 WEEKS
     Route: 042
     Dates: start: 20151221, end: 20160413
  4. CPT-11 [Suspect]
     Active Substance: IRINOTECAN
     Indication: COLON CANCER
     Dosage: 180 MG, EVERY 2 WEEKS
     Route: 042
     Dates: start: 20151002
  5. 5-FU                               /00098801/ [Suspect]
     Active Substance: FLUOROURACIL
     Indication: COLON CANCER
     Dosage: 3450 MG, UNKNOWN
     Route: 042
     Dates: start: 20151002

REACTIONS (5)
  - Bone marrow failure [Unknown]
  - Spinal compression fracture [Recovered/Resolved]
  - Skin disorder [Recovering/Resolving]
  - Osteoporosis [Unknown]
  - Off label use [Unknown]

NARRATIVE: CASE EVENT DATE: 20151231
